FAERS Safety Report 9311717 (Version 3)
Quarter: 2013Q3

REPORT INFORMATION
  Report Type: Spontaneous
  Country: US (occurrence: US)
  Receive Date: 20130528
  Receipt Date: 20130816
  Transmission Date: 20140515
  Serious: Yes (Death, Hospitalization, Disabling, Other)
  Sender: FDA-Public Use
  Company Number: US-009507513-1305USA014566

PATIENT
  Sex: Male
  Weight: 126.98 kg

DRUGS (28)
  1. JANUMET [Suspect]
     Indication: TYPE 2 DIABETES MELLITUS
     Dosage: 500/50 MG BID
     Route: 048
     Dates: start: 20100428, end: 201103
  2. JANUMET [Suspect]
     Dosage: 500/50 MG QD
     Route: 048
  3. ZOLPIDEM TARTRATE [Concomitant]
     Indication: INSOMNIA
     Dosage: 10 MG, HS
  4. NAPROXEN [Concomitant]
     Indication: PAIN
     Dosage: 550 MG, BID
  5. FENOFIBRATE [Concomitant]
     Indication: HYPERTRIGLYCERIDAEMIA
     Dosage: 54-67 MG QD
     Dates: start: 20100428
  6. ASPIRIN [Concomitant]
     Indication: NEUROPATHY PERIPHERAL
     Dosage: 81 MG, QD
     Dates: start: 20100428
  7. ZANTAC [Concomitant]
     Indication: GASTROOESOPHAGEAL REFLUX DISEASE
     Dosage: 150 MG, QD
  8. OMEPRAZOLE [Concomitant]
     Indication: GASTROOESOPHAGEAL REFLUX DISEASE
     Dosage: 20 MG, QD
     Route: 048
  9. CHOLECALCIFEROL [Concomitant]
     Indication: VITAMIN D DEFICIENCY
     Dosage: 50,000 IU BIW
     Route: 048
  10. OXYCONTIN [Concomitant]
     Indication: PAIN
     Dosage: 60 MG, Q12H
     Route: 048
  11. PERCOCET [Concomitant]
     Indication: PAIN
     Dosage: 10/325 MG Q6H
     Route: 048
  12. PIROXICAM [Concomitant]
     Indication: PAIN
     Dosage: 20 MG, QD
     Dates: end: 20121109
  13. ZANAFLEX [Concomitant]
     Indication: PAIN
     Dosage: 4 MG, Q8H
  14. OXYCODONE [Concomitant]
     Indication: PAIN
     Dosage: 40 MG, Q12H
  15. MAXALT [Concomitant]
     Indication: MIGRAINE
     Dosage: 10 MG, UNK
     Route: 048
  16. PHENERGAN (PROMETHAZINE HYDROCHLORIDE) [Concomitant]
     Indication: MIGRAINE
     Dosage: 50 MG, Q6H
  17. ASCORBIC ACID [Concomitant]
     Dosage: QD PRN
  18. VITAMIN B COMPLEX [Concomitant]
     Dosage: 1 QD
  19. VITAMINS (UNSPECIFIED) [Concomitant]
     Dosage: 1 QD
  20. GINKGO [Concomitant]
     Dosage: 120 MG, QD
  21. LYRICA [Concomitant]
     Indication: NEUROPATHY PERIPHERAL
     Dosage: 150 MG, TID
  22. NAMENDA [Concomitant]
     Dosage: 20 MG, QD
  23. NASACORT [Concomitant]
     Dosage: UNK, PRN
  24. AMARYL [Concomitant]
     Indication: TYPE 2 DIABETES MELLITUS
     Dosage: 4 MG, QD
     Dates: start: 20101221
  25. ZESTORETIC [Concomitant]
     Indication: HYPERTENSION
     Dosage: 10/12.5 MG QD
  26. AMLODIPINE [Concomitant]
     Indication: HYPERTENSION
     Dosage: 5 MG, QD
  27. ACTOPLUS MET [Concomitant]
     Indication: TYPE 2 DIABETES MELLITUS
     Dosage: 500 MG/15 MG BID
  28. NICOTINE [Concomitant]
     Indication: TOBACCO USER
     Dosage: 21 MG/24 HOURS QD
     Route: 062
     Dates: start: 20110105

REACTIONS (58)
  - Pancreatic carcinoma metastatic [Fatal]
  - Cholecystectomy [Unknown]
  - Failure to thrive [Unknown]
  - Metastases to liver [Not Recovered/Not Resolved]
  - Metastases to adrenals [Unknown]
  - Back injury [Not Recovered/Not Resolved]
  - Klebsiella bacteraemia [Unknown]
  - Dehydration [Unknown]
  - Abdominal abscess [Unknown]
  - Pain [Unknown]
  - Pancreatitis acute [Not Recovered/Not Resolved]
  - Pancreatitis [Unknown]
  - Abnormal loss of weight [Unknown]
  - Gallbladder obstruction [Unknown]
  - Cholelithiasis [Unknown]
  - Hepatic cirrhosis [Unknown]
  - Cholecystitis [Unknown]
  - Anxiety [Unknown]
  - Depression [Unknown]
  - Paranoia [Unknown]
  - Chest pain [Unknown]
  - Abdominal distension [Unknown]
  - Flatulence [Unknown]
  - Eructation [Unknown]
  - Chills [Unknown]
  - Restlessness [Unknown]
  - Shoulder operation [Unknown]
  - Peptic ulcer [Unknown]
  - Musculoskeletal stiffness [Unknown]
  - Gynaecomastia [Unknown]
  - Autonomic neuropathy [Unknown]
  - Dementia [Unknown]
  - Anxiety disorder [Not Recovered/Not Resolved]
  - Depression [Unknown]
  - Abdominal distension [Unknown]
  - Fall [Unknown]
  - Chronic obstructive pulmonary disease [Not Recovered/Not Resolved]
  - Benign prostatic hyperplasia [Unknown]
  - Bile duct stenosis [Unknown]
  - Bile duct stent insertion [Unknown]
  - Device occlusion [Unknown]
  - Bile duct stent insertion [Unknown]
  - Abnormal loss of weight [Unknown]
  - Localised intraabdominal fluid collection [Unknown]
  - Deep vein thrombosis [Unknown]
  - Small intestinal obstruction [Unknown]
  - Urinary retention [Unknown]
  - Malnutrition [Unknown]
  - Insomnia [Unknown]
  - Agitation [Unknown]
  - Decubitus ulcer [Unknown]
  - Stent placement [Unknown]
  - Nausea [Not Recovered/Not Resolved]
  - Constipation [Unknown]
  - Abdominal pain upper [Not Recovered/Not Resolved]
  - Vomiting [Not Recovered/Not Resolved]
  - Diarrhoea [Unknown]
  - Nausea [Unknown]
